FAERS Safety Report 8018675-7 (Version None)
Quarter: 2012Q1

REPORT INFORMATION
  Report Type: 
  Country: None (occurrence: None)
  Receive Date: 20120103
  Receipt Date: 20120103
  Transmission Date: 20120608
  Serious: Yes (Other)
  Sender: FDA-Public Use
  Company Number: None

PATIENT
  Age: 20 Month
  Sex: Male
  Weight: 11.339 kg

DRUGS (1)
  1. AZITHROMYCIN [Suspect]
     Indication: EAR INFECTION
     Dosage: 6 ML
     Route: 048
     Dates: start: 20111212, end: 20111216

REACTIONS (3)
  - IRRITABILITY [None]
  - ABNORMAL BEHAVIOUR [None]
  - SLEEP DISORDER [None]
